FAERS Safety Report 8549374-0 (Version None)
Quarter: 2012Q2

REPORT INFORMATION
  Report Type: 
  Country: None (occurrence: None)
  Receive Date: 20120416
  Receipt Date: 20100823
  Transmission Date: 20120825
  Serious: Yes (Other)
  Sender: FDA-Public Use
  Company Number: PHHY2010US55726

PATIENT
  Age: 79 Year
  Sex: Female

DRUGS (7)
  1. DIOVAN [Suspect]
     Indication: BLOOD PRESSURE
     Dosage: 160 MG, BID
     Dates: start: 20090101, end: 20100818
  2. TEKTURNA [Suspect]
  3. PHYTONADIONE [Concomitant]
  4. LASIX [Concomitant]
  5. MAGNESIUM (MAGNESIUM) [Concomitant]
  6. MULTIVITAMIN [Concomitant]
  7. ASPIRIN [Concomitant]

REACTIONS (3)
  - DRUG INEFFECTIVE [None]
  - BLOOD PRESSURE INCREASED [None]
  - BLOOD DISORDER [None]
